FAERS Safety Report 16959470 (Version 2)
Quarter: 2019Q4

REPORT INFORMATION
  Report Type: Spontaneous
  Country: JP (occurrence: JP)
  Receive Date: 20191025
  Receipt Date: 20191223
  Transmission Date: 20200122
  Serious: Yes (Hospitalization, Other)
  Sender: FDA-Public Use
  Company Number: JP-TEVA-2019-JP-1129123

PATIENT
  Age: 52 Year
  Sex: Female

DRUGS (5)
  1. BENDAMUSTINE HYDROCHLORIDE. [Suspect]
     Active Substance: BENDAMUSTINE HYDROCHLORIDE
     Dosage: 90 MG/M2, ONCE DAILY (2ND CYCLE)
     Route: 042
     Dates: start: 20190911, end: 20190912
  2. BENDAMUSTINE HYDROCHLORIDE. [Suspect]
     Active Substance: BENDAMUSTINE HYDROCHLORIDE
     Indication: WALDENSTROM^S MACROGLOBULINAEMIA
     Dosage: 90 MG/M2, ONCE DAILY (1ST CYCLE)
     Route: 042
     Dates: start: 20190806, end: 20190807
  3. RITUXIMAB. [Suspect]
     Active Substance: RITUXIMAB
     Dosage: CYCLIC (2ND CYCLE)
     Route: 041
     Dates: start: 201909
  4. RITUXIMAB. [Suspect]
     Active Substance: RITUXIMAB
     Indication: WALDENSTROM^S MACROGLOBULINAEMIA
     Dosage: CYCLIC (1ST CYCLE)
     Route: 041
     Dates: start: 201908
  5. SULFAMETHOXAZOLE W/TRIMETHOPRIM [Concomitant]
     Active Substance: SULFAMETHOXAZOLE\TRIMETHOPRIM
     Indication: INFECTION PROPHYLAXIS
     Route: 048
     Dates: start: 20190806

REACTIONS (3)
  - Product use in unapproved indication [Unknown]
  - Cytomegalovirus infection [Recovered/Resolved]
  - Haemolytic anaemia [Recovered/Resolved]

NARRATIVE: CASE EVENT DATE: 20190806
